FAERS Safety Report 10219298 (Version 1)
Quarter: 2014Q2

REPORT INFORMATION
  Report Type: Report from Study
  Country: TR (occurrence: None)
  Receive Date: 20140603
  Receipt Date: 20140603
  Transmission Date: 20141212
  Serious: Yes (Hospitalization)
  Sender: FDA-Public Use
  Company Number: VAL_03163_2014

PATIENT
  Age: 51 Year
  Sex: Male
  Weight: 68 kg

DRUGS (11)
  1. METOPROLOL (METOPROLOL - METOPROLOL TARTRATE) [Suspect]
     Indication: PRODUCT USED FOR UNKNOWN INDICATION
     Dosage: DF
  2. HYDROCHLOROTHIAZIDE (HYDROCHLOROTHIAZIDE) [Suspect]
     Indication: PRODUCT USED FOR UNKNOWN INDICATION
     Dosage: DF
  3. LCZ696 [Suspect]
     Indication: CARDIAC FAILURE CHRONIC
     Dosage: (CODE NOT BROKEN)
     Dates: start: 20140326, end: 20140520
  4. FUROSEMIDE (FUROSEMIDE) [Suspect]
     Indication: PRODUCT USED FOR UNKNOWN INDICATION
     Dosage: DF
  5. BELOC-ZOK COMP [Concomitant]
  6. NEURONTIN [Concomitant]
  7. DIAFORMIN [Concomitant]
  8. LASIX [Concomitant]
  9. CORASPIN [Concomitant]
  10. ALDACTAZIDE [Concomitant]
  11. FLOMAX [Concomitant]

REACTIONS (7)
  - Oedema [None]
  - Hypotension [None]
  - Pulmonary oedema [None]
  - Hyponatraemia [None]
  - Confusional state [None]
  - Jaundice [None]
  - Diabetic foot infection [None]
